FAERS Safety Report 9536236 (Version 4)
Quarter: 2014Q1

REPORT INFORMATION
  Report Type: Spontaneous
  Country: SE (occurrence: SE)
  Receive Date: 20130919
  Receipt Date: 20140220
  Transmission Date: 20141002
  Serious: Yes (Other)
  Sender: FDA-Public Use
  Company Number: SE-JNJFOC-20130909803

PATIENT
  Age: 67 Year
  Sex: Female

DRUGS (10)
  1. XARELTO [Suspect]
     Indication: CEREBROVASCULAR ACCIDENT PROPHYLAXIS
     Route: 048
     Dates: start: 20130130
  2. XARELTO [Suspect]
     Indication: ATRIAL FLUTTER
     Route: 048
     Dates: start: 20130130
  3. XARELTO [Suspect]
     Indication: ATRIAL FIBRILLATION
     Route: 048
     Dates: start: 20130130
  4. TRIATEC [Concomitant]
     Route: 065
  5. NEXIUM [Concomitant]
     Route: 065
  6. SIMVASTATIN [Concomitant]
     Route: 065
  7. COLECALCIFEROL [Concomitant]
     Route: 065
  8. PROPAVAN [Concomitant]
     Route: 065
  9. STILNOCT [Concomitant]
     Route: 065
  10. NORVASC [Concomitant]
     Route: 065

REACTIONS (5)
  - Gastrointestinal injury [Unknown]
  - Retinal haemorrhage [Not Recovered/Not Resolved]
  - Small intestinal haemorrhage [Unknown]
  - Small intestinal perforation [Unknown]
  - Haematoma [Unknown]
